FAERS Safety Report 9940691 (Version 3)
Quarter: 2014Q2

REPORT INFORMATION
  Report Type: Spontaneous
  Country: US (occurrence: US)
  Receive Date: 20140303
  Receipt Date: 20140509
  Transmission Date: 20141212
  Serious: Yes (Death, Other)
  Sender: FDA-Public Use
  Company Number: US-B.I. PHARMACEUTICALS,INC./RIDGEFIELD-2014-BI-08759BP

PATIENT
  Age: 62 Year
  Sex: Female

DRUGS (1)
  1. SPIRIVA [Suspect]
     Indication: PRODUCT USED FOR UNKNOWN INDICATION
     Dosage: 18 MCG
     Route: 055

REACTIONS (2)
  - Diabetes mellitus [Fatal]
  - Lymphoma [Recovered/Resolved]
